FAERS Safety Report 7141117-0 (Version None)
Quarter: 2010Q4

REPORT INFORMATION
  Report Type: 
  Country: None (occurrence: None)
  Receive Date: 20101202
  Receipt Date: 20101202
  Transmission Date: 20110411
  Serious: Yes (Other)
  Sender: FDA-Public Use
  Company Number: None

PATIENT
  Age: 80 Year
  Sex: Female
  Weight: 63.5036 kg

DRUGS (1)
  1. STANDARD MITES (I DON'T KNOW THE STRENGTH AND MANUFACTURER. [Suspect]
     Indication: HYPERSENSITIVITY
     Dates: start: 20101007

REACTIONS (4)
  - BLOOD PRESSURE INCREASED [None]
  - COUGH [None]
  - NO REACTION ON PREVIOUS EXPOSURE TO DRUG [None]
  - THROAT IRRITATION [None]
